FAERS Safety Report 8520494-X (Version None)
Quarter: 2012Q3

REPORT INFORMATION
  Report Type: 
  Country: None (occurrence: None)
  Receive Date: 20120719
  Receipt Date: 20120712
  Transmission Date: 20120928
  Serious: Yes (Hospitalization)
  Sender: FDA-Public Use
  Company Number: US-BAYER-2012-070891

PATIENT
  Age: 40 Year
  Sex: Female
  Weight: 64.853 kg

DRUGS (8)
  1. YASMIN [Suspect]
  2. LEXAPRO [Concomitant]
     Dosage: 20 MG, DAILY
  3. PHENAZOPYRIDINE HCL TAB [Concomitant]
     Dosage: UNK
     Dates: start: 20070601
  4. FOLIC ACID [Concomitant]
     Dosage: 1 MG, DAILY
     Dates: start: 20070601
  5. BACTRIM [Concomitant]
     Dosage: UNK
     Dates: start: 20070601
  6. CEFTIN [Concomitant]
     Dosage: 500 MG, BID
     Dates: start: 20070601
  7. FERROUS SULFATE TAB [Concomitant]
     Dosage: 300 MG, TID
     Dates: start: 20070601
  8. PROTONIX [Concomitant]
     Dosage: 40 MG, DAILY
     Dates: start: 20070601

REACTIONS (1)
  - PULMONARY EMBOLISM [None]
